FAERS Safety Report 12890837 (Version 1)
Quarter: 2016Q4

REPORT INFORMATION
  Report Type: Spontaneous
  Country: IT (occurrence: IT)
  Receive Date: 20161027
  Receipt Date: 20161027
  Transmission Date: 20170207
  Serious: Yes (Hospitalization)
  Sender: FDA-Public Use
  Company Number: IT-BRISTOL-MYERS SQUIBB COMPANY-BMS-2016-086722

PATIENT
  Age: 67 Year
  Sex: Female

DRUGS (1)
  1. COUMADIN [Suspect]
     Active Substance: WARFARIN SODIUM
     Indication: ATRIAL FIBRILLATION
     Dosage: 1 UNIT, UNK
     Route: 048
     Dates: start: 20160101, end: 20160918

REACTIONS (3)
  - Fracture [Unknown]
  - Wound [Unknown]
  - Head injury [Unknown]

NARRATIVE: CASE EVENT DATE: 20160918
